FAERS Safety Report 4726254-X (Version None)
Quarter: 2005Q3

REPORT INFORMATION
  Report Type: 
  Country: None (occurrence: None)
  Receive Date: 20050725
  Receipt Date: 20050711
  Transmission Date: 20060218
  Serious: Yes (Hospitalization, Other)
  Sender: FDA-Public Use
  Company Number: HQWYE648411MAY05

PATIENT
  Age: 4 Year
  Sex: Female

DRUGS (3)
  1. CHILDREN'S ADVIL [Suspect]
     Indication: PYREXIA
     Dosage: 112 MG 8X PER 1 DAY ORAL
     Route: 048
     Dates: start: 20050324, end: 20050325
  2. CHILDREN'S ADVIL [Suspect]
     Indication: RHINITIS
     Dosage: 112 MG 8X PER 1 DAY ORAL
     Route: 048
     Dates: start: 20050324, end: 20050325
  3. DOLIPRANE [Concomitant]

REACTIONS (5)
  - ABDOMINAL PAIN [None]
  - OVERDOSE [None]
  - PLEURISY [None]
  - PNEUMONIA [None]
  - PURULENCE [None]
